FAERS Safety Report 8563559-9 (Version None)
Quarter: 2012Q3

REPORT INFORMATION
  Report Type: 
  Country: None (occurrence: None)
  Receive Date: 20120803
  Receipt Date: 20120720
  Transmission Date: 20120928
  Serious: Yes (Hospitalization)
  Sender: FDA-Public Use
  Company Number: GB-AMGEN-GBRCT2012044491

PATIENT
  Age: 51 Year
  Sex: Female
  Weight: 84 kg

DRUGS (8)
  1. DICLOFENAC SODIUM [Concomitant]
     Dosage: UNK
     Route: 065
  2. PROTHIADEN [Concomitant]
     Dosage: UNK
     Route: 065
  3. CIMETIDINE [Concomitant]
     Dosage: UNK
     Route: 065
  4. ACETAMINOPHEN AND CODEINE PHOSPHATE [Concomitant]
     Dosage: UNK
     Route: 065
  5. IRBESARTAN [Concomitant]
     Dosage: UNK
     Route: 065
  6. ETANERCEPT [Suspect]
     Indication: RHEUMATOID ARTHRITIS
     Dosage: 25 MG, 2 TIMES/WK
     Route: 058
     Dates: start: 20080401
  7. PREDNISOLONE [Concomitant]
     Dosage: UNK
     Route: 065
  8. METHOTREXATE [Concomitant]
     Dosage: UNK
     Route: 065

REACTIONS (1)
  - CALCULUS URETERIC [None]
